FAERS Safety Report 8013060-6 (Version None)
Quarter: 2011Q4

REPORT INFORMATION
  Report Type: 
  Country: None (occurrence: None)
  Receive Date: 20111229
  Receipt Date: 20111221
  Transmission Date: 20120403
  Serious: Yes (Other)
  Sender: FDA-Public Use
  Company Number: US-PFIZER INC-2011268060

PATIENT
  Age: 73 Year
  Sex: Female
  Weight: 97 kg

DRUGS (5)
  1. CELEBREX [Suspect]
     Indication: PAIN
  2. CADUET [Suspect]
     Indication: HYPERTENSION
     Dosage: [AMLODIPINE BESYLATE 10 MG]/[ATORVASTATIN CALCIUM 20MG] DAILY
     Route: 048
  3. CADUET [Suspect]
     Indication: BLOOD CHOLESTEROL ABNORMAL
  4. CELEBREX [Suspect]
     Indication: INFLAMMATION
  5. CELEBREX [Suspect]
     Indication: ARTHRITIS
     Dosage: 200 MG, 1X/DAY
     Route: 048
     Dates: end: 20110101

REACTIONS (4)
  - CARDIAC DISORDER [None]
  - GAIT DISTURBANCE [None]
  - HEARING IMPAIRED [None]
  - PAIN [None]
